FAERS Safety Report 8345190-3 (Version None)
Quarter: 2012Q2

REPORT INFORMATION
  Report Type: 
  Country: None (occurrence: None)
  Receive Date: 20120508
  Receipt Date: 20120430
  Transmission Date: 20120825
  Serious: Yes (Death)
  Sender: FDA-Public Use
  Company Number: US-ACTELION-A-US2012-64913

PATIENT

DRUGS (3)
  1. VENTAVIS [Suspect]
     Indication: PULMONARY ARTERIAL HYPERTENSION
     Dosage: UNK
     Route: 055
     Dates: start: 20080828, end: 20120424
  2. LETAIRIS [Concomitant]
  3. SILDENAFIL [Concomitant]

REACTIONS (4)
  - DEATH [None]
  - DYSPNOEA [None]
  - CELLULITIS [None]
  - DIARRHOEA [None]
